FAERS Safety Report 15459206 (Version 1)
Quarter: 2018Q3

REPORT INFORMATION
  Report Type: Spontaneous
  Country: US (occurrence: US)
  Receive Date: 20180928
  Receipt Date: 20180928
  Transmission Date: 20181010
  Serious: Yes (Hospitalization)
  Sender: FDA-Public Use
  Company Number: None

PATIENT
  Age: 6 Year
  Sex: Female

DRUGS (3)
  1. JADENU [Suspect]
     Active Substance: DEFERASIROX
     Indication: ANAEMIA
     Route: 048
     Dates: start: 20180306
  2. FOLIC ACID. [Concomitant]
     Active Substance: FOLIC ACID
  3. AXITHROMYCIN [Concomitant]

REACTIONS (3)
  - Malaise [None]
  - Viral infection [None]
  - Vomiting [None]

NARRATIVE: CASE EVENT DATE: 20180918
